FAERS Safety Report 20245423 (Version 4)
Quarter: 2024Q4

REPORT INFORMATION
  Report Type: Report from Study
  Country: DE (occurrence: DE)
  Receive Date: 20211229
  Receipt Date: 20241001
  Transmission Date: 20250115
  Serious: Yes (Other)
  Sender: NOVARTIS
  Company Number: DE-NOVARTISPH-NVSC2021DE206473

PATIENT
  Age: 49 Year
  Sex: Female
  Weight: 88 kg

DRUGS (8)
  1. MAYZENT [Suspect]
     Active Substance: SIPONIMOD
     Indication: Secondary progressive multiple sclerosis
     Dosage: 2 MG, QD
     Route: 048
     Dates: start: 20210601, end: 20210928
  2. TROSPIUM CHLORIDE [Concomitant]
     Active Substance: TROSPIUM CHLORIDE
     Indication: Pain
     Dosage: 30 MG (HALF A DOSE FORM IN THE MORNING)
     Route: 048
     Dates: start: 201302
  3. TROSPIUM CHLORIDE [Concomitant]
     Active Substance: TROSPIUM CHLORIDE
     Dosage: 30 MG (ONE DOSE FORM IN THE EVENING)
     Route: 048
     Dates: start: 201302
  4. TROSPIUM CHLORIDE [Concomitant]
     Active Substance: TROSPIUM CHLORIDE
     Dosage: 600 MG
     Route: 065
  5. CITALOPRAM [Concomitant]
     Active Substance: CITALOPRAM
     Indication: Depression
     Dosage: 20 MG, QD (IN THE MORNING)
     Route: 048
     Dates: start: 200908
  6. GABAPENTIN [Concomitant]
     Active Substance: GABAPENTIN
     Indication: Dysuria
     Dosage: 300 MG, BID (ONCE IN THE MORNING, ONCE IN THE EVENING)
     Route: 048
     Dates: start: 200803
  7. GABAPENTIN [Concomitant]
     Active Substance: GABAPENTIN
     Dosage: 30 MG, QD
     Route: 065
  8. BACLOFEN [Concomitant]
     Active Substance: BACLOFEN
     Indication: Product used for unknown indication
     Dosage: 10 MG (HALF A DOSE FORM IN THE MORNING, HALF A DOSE FROM IN EVENING)
     Route: 048
     Dates: start: 201302

REACTIONS (9)
  - Angina pectoris [Recovered/Resolved]
  - Liver function test increased [Recovered/Resolved]
  - Headache [Recovered/Resolved]
  - Nausea [Recovered/Resolved]
  - Gamma-glutamyltransferase increased [Unknown]
  - Alanine aminotransferase increased [Unknown]
  - Aspartate aminotransferase increased [Unknown]
  - Nausea [Recovered/Resolved]
  - Headache [Recovered/Resolved]

NARRATIVE: CASE EVENT DATE: 20210908
